FAERS Safety Report 13950659 (Version 1)
Quarter: 2017Q3

REPORT INFORMATION
  Report Type: Spontaneous
  Country: US (occurrence: US)
  Receive Date: 20170908
  Receipt Date: 20170908
  Transmission Date: 20171128
  Serious: No
  Sender: FDA-Public Use
  Company Number: US-ROCHE-1133804

PATIENT
  Sex: Female

DRUGS (18)
  1. BENADRYL [Concomitant]
     Active Substance: DIPHENHYDRAMINE HYDROCHLORIDE
     Route: 065
     Dates: start: 19980410
  2. TYLENOL [Concomitant]
     Active Substance: ACETAMINOPHEN
     Route: 065
     Dates: start: 19980509
  3. MECHLORETHAMINE [Concomitant]
     Active Substance: MECHLORETHAMINE
  4. BENADRYL [Concomitant]
     Active Substance: DIPHENHYDRAMINE HYDROCHLORIDE
     Route: 065
     Dates: start: 19980430
  5. BENADRYL [Concomitant]
     Active Substance: DIPHENHYDRAMINE HYDROCHLORIDE
     Route: 065
     Dates: start: 19980509
  6. TYLENOL [Concomitant]
     Active Substance: ACETAMINOPHEN
     Route: 065
     Dates: start: 19980410
  7. VINCRISTINE [Concomitant]
     Active Substance: VINCRISTINE
  8. PROCARBAZINE [Concomitant]
     Active Substance: PROCARBAZINE
  9. RITUXAN [Suspect]
     Active Substance: RITUXIMAB
     Indication: B-CELL LYMPHOMA
  10. RITUXAN [Suspect]
     Active Substance: RITUXIMAB
     Indication: FOLLICLE CENTRE LYMPHOMA, FOLLICULAR GRADE I, II, III
     Route: 065
     Dates: start: 19980416
  11. RITUXAN [Suspect]
     Active Substance: RITUXIMAB
     Indication: OFF LABEL USE
  12. BENADRYL [Concomitant]
     Active Substance: DIPHENHYDRAMINE HYDROCHLORIDE
     Route: 065
     Dates: start: 19980223
  13. DOXORUBICIN [Concomitant]
     Active Substance: DOXORUBICIN
  14. PREDNISONE. [Concomitant]
     Active Substance: PREDNISONE
  15. CYCLOPHOSPHAMIDE. [Concomitant]
     Active Substance: CYCLOPHOSPHAMIDE
  16. TYLENOL [Concomitant]
     Active Substance: ACETAMINOPHEN
     Route: 065
     Dates: start: 19980223
  17. TYLENOL [Concomitant]
     Active Substance: ACETAMINOPHEN
     Route: 065
     Dates: start: 19980430
  18. ETOPOSIDE. [Concomitant]
     Active Substance: ETOPOSIDE

REACTIONS (4)
  - Arthralgia [Unknown]
  - C-reactive protein increased [Unknown]
  - Myalgia [Unknown]
  - Influenza [Unknown]
